FAERS Safety Report 14337301 (Version 2)
Quarter: 2018Q1

REPORT INFORMATION
  Report Type: Spontaneous
  Country: PT (occurrence: PT)
  Receive Date: 20171229
  Receipt Date: 20180111
  Transmission Date: 20180509
  Serious: Yes (Death, Other)
  Sender: FDA-Public Use
  Company Number: PHHY2017PT089372

PATIENT
  Sex: Female

DRUGS (6)
  1. INSULIN [Concomitant]
     Active Substance: INSULIN NOS
     Indication: PRODUCT USED FOR UNKNOWN INDICATION
     Dosage: UNK
     Route: 065
  2. EVEROLIMUS. [Suspect]
     Active Substance: EVEROLIMUS
     Indication: NEUROENDOCRINE TUMOUR
     Route: 065
  3. FENTANYL. [Concomitant]
     Active Substance: FENTANYL
     Indication: PRODUCT USED FOR UNKNOWN INDICATION
     Dosage: 25 UG, TID
  4. ESOMEPRAZOLE [Concomitant]
     Active Substance: ESOMEPRAZOLE
     Indication: PRODUCT USED FOR UNKNOWN INDICATION
     Dosage: 20 MG, UNK
     Route: 065
  5. AAS [Concomitant]
     Active Substance: ASPIRIN
     Indication: PRODUCT USED FOR UNKNOWN INDICATION
     Dosage: 150 MG, UNK
     Route: 065
  6. ENALAPRIL [Concomitant]
     Active Substance: ENALAPRIL
     Indication: PRODUCT USED FOR UNKNOWN INDICATION
     Dosage: 10 MG, UNK
     Route: 065

REACTIONS (11)
  - Metastases to bone [Unknown]
  - Toxicity to various agents [Unknown]
  - Metastases to lung [Unknown]
  - Pleural effusion [Unknown]
  - Pneumonitis [Unknown]
  - Dyspnoea [Unknown]
  - Neuroendocrine tumour [Fatal]
  - Cough [Unknown]
  - Malignant neoplasm progression [Fatal]
  - Metastases to the mediastinum [Unknown]
  - Metastases to adrenals [Unknown]

NARRATIVE: CASE EVENT DATE: 20170530
